FAERS Safety Report 5331792-5 (Version None)
Quarter: 2007Q2

REPORT INFORMATION
  Report Type: 
  Country: None (occurrence: None)
  Receive Date: 20070517
  Receipt Date: 20070502
  Transmission Date: 20071010
  Serious: Yes (Hospitalization)
  Sender: FDA-Public Use
  Company Number: 2007S1002139

PATIENT
  Age: 48 Year
  Sex: Male

DRUGS (11)
  1. CLOZAPINE [Suspect]
     Indication: BIPOLAR DISORDER
     Dosage: SEE IMAGE
     Route: 048
     Dates: start: 20020501, end: 20070218
  2. CLOZAPINE [Suspect]
     Indication: SCHIZOAFFECTIVE DISORDER
     Dosage: SEE IMAGE
     Route: 048
     Dates: start: 20020501, end: 20070218
  3. CLOZAPINE [Suspect]
     Indication: BIPOLAR DISORDER
     Dosage: SEE IMAGE
     Route: 048
     Dates: start: 20070401, end: 20070401
  4. CLOZAPINE [Suspect]
     Indication: SCHIZOAFFECTIVE DISORDER
     Dosage: SEE IMAGE
     Route: 048
     Dates: start: 20070401, end: 20070401
  5. PAXIL [Suspect]
     Dosage: 60 MG; ORAL
     Route: 048
     Dates: start: 20061001
  6. GLYBURIDE AND METFORMIN HCL [Concomitant]
  7. PREVACID [Concomitant]
  8. ACTOS [Concomitant]
  9. CRESTOR [Concomitant]
  10. LISINOPRIL [Concomitant]
  11. LANTUS [Concomitant]

REACTIONS (6)
  - ANAEMIA [None]
  - GRANULOCYTOPENIA [None]
  - HAEMODYNAMIC INSTABILITY [None]
  - LEUKOPENIA [None]
  - LYMPHOMA [None]
  - SHOCK [None]
